FAERS Safety Report 4686799-8 (Version None)
Quarter: 2005Q2

REPORT INFORMATION
  Report Type: 
  Country: None (occurrence: None)
  Receive Date: 20050608
  Receipt Date: 20050526
  Transmission Date: 20051028
  Serious: Yes (Hospitalization, Other)
  Sender: FDA-Public Use
  Company Number: 2005040030

PATIENT
  Age: 73 Year
  Sex: Male

DRUGS (6)
  1. NORVASC [Suspect]
     Indication: ESSENTIAL HYPERTENSION
     Dosage: 5 MG (5 MG, ONCE A DAY), ORAL
     Route: 048
     Dates: start: 20040213
  2. CITRUS PARADIST FRUIT JUICE (CITRUS PARADISI FRUIT JUICE) [Suspect]
     Indication: ILL-DEFINED DISORDER
     Dosage: ORAL
     Route: 048
  3. BISOPROLOL FUMARATE [Concomitant]
  4. ESTAZOLAM [Concomitant]
  5. ALLOPURINOL [Concomitant]
  6. PLETAL [Concomitant]

REACTIONS (10)
  - BLOOD PRESSURE DECREASED [None]
  - BLOOD PRESSURE INCREASED [None]
  - CEREBRAL INFARCTION [None]
  - DEPRESSED LEVEL OF CONSCIOUSNESS [None]
  - DIZZINESS [None]
  - FEELING ABNORMAL [None]
  - FOOD INTERACTION [None]
  - LACUNAR INFARCTION [None]
  - MALAISE [None]
  - NAUSEA [None]
